FAERS Safety Report 13571060 (Version 1)
Quarter: 2017Q2

REPORT INFORMATION
  Report Type: Other
  Country: KR (occurrence: KR)
  Receive Date: 20170523
  Receipt Date: 20170523
  Transmission Date: 20170830
  Serious: Yes (Hospitalization, Other)
  Sender: FDA-Public Use
  Company Number: KR-ORCHID HEALTHCARE-2021086

PATIENT
  Age: 68 Year
  Sex: Male

DRUGS (1)
  1. RASAGILINE MESYLATE. [Suspect]
     Active Substance: RASAGILINE MESYLATE
     Indication: PARKINSON^S DISEASE
     Route: 065

REACTIONS (1)
  - Cholecystitis acute [Recovered/Resolved]
